FAERS Safety Report 6032832-0 (Version None)
Quarter: 2009Q1

REPORT INFORMATION
  Report Type: 
  Country: None (occurrence: None)
  Receive Date: 20090109
  Receipt Date: 20090105
  Transmission Date: 20090719
  Serious: Yes (Hospitalization)
  Sender: FDA-Public Use
  Company Number: PHHO2007MX12863

PATIENT
  Sex: Male

DRUGS (2)
  1. ZELNORM [Suspect]
     Indication: IRRITABLE BOWEL SYNDROME
     Dosage: 12 MG/DAY (2 TABLETS/DAY)
     Route: 048
     Dates: start: 20070301, end: 20070401
  2. OMEPRAZOLE [Concomitant]

REACTIONS (3)
  - ABDOMINAL DISCOMFORT [None]
  - HERNIA [None]
  - HERNIA REPAIR [None]
